FAERS Safety Report 7720226-9 (Version None)
Quarter: 2011Q3

REPORT INFORMATION
  Report Type: 
  Country: None (occurrence: None)
  Receive Date: 20110831
  Receipt Date: 20110824
  Transmission Date: 20111222
  Serious: Yes (Hospitalization)
  Sender: FDA-Public Use
  Company Number: JP-PFIZER INC-2011197801

PATIENT
  Age: 64 Year
  Sex: Male

DRUGS (4)
  1. TENOFOVIR [Suspect]
     Dosage: 300 MG, UNK
     Route: 048
     Dates: start: 20030409
  2. VIRACEPT [Suspect]
     Dosage: 2500 MG, UNK
     Route: 048
     Dates: start: 20030425
  3. NEVIRAPINE [Suspect]
     Dosage: 400 MG, UNK
     Route: 048
     Dates: start: 20050715
  4. BERIZYM [Concomitant]
     Dosage: UNK
     Route: 048
     Dates: start: 20040906

REACTIONS (1)
  - CELLULITIS [None]
